FAERS Safety Report 6887299-7 (Version None)
Quarter: 2010Q3

REPORT INFORMATION
  Report Type: 
  Country: None (occurrence: None)
  Receive Date: 20100730
  Receipt Date: 20090724
  Transmission Date: 20110219
  Serious: Yes (Other)
  Sender: FDA-Public Use
  Company Number: A0790182A

PATIENT
  Age: 52 Year
  Sex: Female
  Weight: 56.8 kg

DRUGS (2)
  1. SUMATRIPTAN SUCCINATE [Suspect]
     Route: 048
     Dates: start: 20090501
  2. SUMATRIPTAN SUCCINATE [Concomitant]
     Dates: start: 20090101, end: 20090101

REACTIONS (2)
  - DRUG INEFFECTIVE [None]
  - PRODUCT QUALITY ISSUE [None]
